FAERS Safety Report 20201639 (Version 1)
Quarter: 2021Q4

REPORT INFORMATION
  Report Type: Spontaneous
  Country: HT (occurrence: HT)
  Receive Date: 20211217
  Receipt Date: 20211217
  Transmission Date: 20220303
  Serious: Yes (Death)
  Sender: FDA-Public Use
  Company Number: HT-NOVARTISPH-NVSC2021HT289289

PATIENT
  Sex: Male

DRUGS (1)
  1. GLIVEC [Suspect]
     Active Substance: IMATINIB MESYLATE
     Indication: Chronic myeloid leukaemia
     Dosage: 400 MG (1? 400MG)
     Route: 065

REACTIONS (5)
  - Death [Fatal]
  - Skin lesion [Unknown]
  - Pain in extremity [Unknown]
  - Contusion [Unknown]
  - Product dose omission issue [Unknown]
